FAERS Safety Report 6359134-7 (Version None)
Quarter: 2009Q3

REPORT INFORMATION
  Report Type: 
  Country: None (occurrence: None)
  Receive Date: 20090917
  Receipt Date: 20090914
  Transmission Date: 20100115
  Serious: Yes (Other)
  Sender: FDA-Public Use
  Company Number: US-TEVA-209185USA

PATIENT
  Sex: Female
  Weight: 103.51 kg

DRUGS (1)
  1. PLAN B [Suspect]
     Indication: POST COITAL CONTRACEPTION
     Route: 048
     Dates: start: 20090515, end: 20090516

REACTIONS (8)
  - CERVIX CARCINOMA [None]
  - DRUG INEFFECTIVE [None]
  - DYSPNOEA [None]
  - MENSTRUATION IRREGULAR [None]
  - NAUSEA [None]
  - PREGNANCY AFTER POST COITAL CONTRACEPTION [None]
  - PRESYNCOPE [None]
  - VOMITING [None]
